FAERS Safety Report 10549157 (Version 3)
Quarter: 2015Q2

REPORT INFORMATION
  Report Type: Spontaneous
  Country: US (occurrence: US)
  Receive Date: 20141028
  Receipt Date: 20150515
  Transmission Date: 20150821
  Serious: Yes (Life-Threatening, Hospitalization)
  Sender: FDA-Public Use
  Company Number: US-BAYER-2014-158619

PATIENT
  Age: 29 Year
  Sex: Female
  Weight: 53.52 kg

DRUGS (2)
  1. LO LOESTRIN FE [Concomitant]
     Active Substance: ETHINYL ESTRADIOL\NORETHINDRONE ACETATE
     Dosage: UNK
     Dates: start: 2011
  2. MIRENA [Suspect]
     Active Substance: LEVONORGESTREL
     Indication: CONTRACEPTION
     Dosage: 20 MCG/24HR, CONT
     Route: 015
     Dates: start: 20071119, end: 20121126

REACTIONS (7)
  - Injury [None]
  - General physical health deterioration [None]
  - Fear [None]
  - Uterine perforation [None]
  - Device issue [None]
  - Anxiety [None]
  - Abdominal pain lower [None]

NARRATIVE: CASE EVENT DATE: 200712
